FAERS Safety Report 5739414-6 (Version None)
Quarter: 2008Q2

REPORT INFORMATION
  Report Type: 
  Country: None (occurrence: None)
  Receive Date: 20080515
  Receipt Date: 20080506
  Transmission Date: 20081010
  Serious: Yes (Hospitalization)
  Sender: FDA-Public Use
  Company Number: DE-PFIZER INC-2008039426

PATIENT
  Age: 18 Year
  Sex: Male

DRUGS (1)
  1. ZITHROMAX [Suspect]
     Indication: NASOPHARYNGITIS
     Route: 048

REACTIONS (1)
  - FACIAL PARESIS [None]
